FAERS Safety Report 16966954 (Version 2)
Quarter: 2019Q4

REPORT INFORMATION
  Report Type: Spontaneous
  Country: US (occurrence: US)
  Receive Date: 20191028
  Receipt Date: 20191213
  Transmission Date: 20200122
  Serious: No
  Sender: FDA-Public Use
  Company Number: US-SA-2019SA296901

PATIENT
  Sex: Male

DRUGS (2)
  1. DUPIXENT [Suspect]
     Active Substance: DUPILUMAB
     Indication: DERMATITIS ATOPIC
     Dosage: 300 MG, QOW
     Route: 058
     Dates: start: 20180130
  2. DUPIXENT [Suspect]
     Active Substance: DUPILUMAB
     Indication: NEURODERMATITIS

REACTIONS (2)
  - Eye infection [Not Recovered/Not Resolved]
  - Eye discharge [Unknown]
